FAERS Safety Report 21312921 (Version 1)
Quarter: 2022Q3

REPORT INFORMATION
  Report Type: Report from Study
  Country: US (occurrence: None)
  Receive Date: 20220909
  Receipt Date: 20220909
  Transmission Date: 20221026
  Serious: Yes (Other)
  Sender: FDA-Public Use
  Company Number: US-ROCHE-2681921

PATIENT
  Age: 53 Year
  Sex: Male
  Weight: 80.9 kg

DRUGS (4)
  1. OBINUTUZUMAB [Suspect]
     Active Substance: OBINUTUZUMAB
     Indication: Chronic lymphocytic leukaemia
     Dosage: LAST DATE OF ADMINISTRATION WAS ON 04/SEP/2020?100 MG IV ON DAY 1, CYCLE 1?TOTAL DOSE ADMINISTERED T
     Route: 042
     Dates: start: 20200903, end: 20200904
  2. OBINUTUZUMAB [Suspect]
     Active Substance: OBINUTUZUMAB
     Dosage: 900 MG IV ON DAY 2, CYCLE 1
     Route: 042
  3. OBINUTUZUMAB [Suspect]
     Active Substance: OBINUTUZUMAB
     Dosage: 1000 MG IV ON DAY 8, CYCLE 1, 1000 MG IV ON DAY 15, CYCLE 1 1000 MG IV ON DAY 1, CYCLE 2-6
     Route: 042
  4. IBRUTINIB [Suspect]
     Active Substance: IBRUTINIB
     Indication: Chronic lymphocytic leukaemia
     Dosage: 420 MG PO QD ON DAYS 1-28, CYCLES 1-19?TOTAL DOSE ADMINISTERED THIS COURSE (DOSE): 3360 MG. LAST ADM
     Route: 048
     Dates: start: 20200903, end: 20200910

REACTIONS (2)
  - Neutrophil count decreased [Recovered/Resolved]
  - Lymphocyte count decreased [Recovered/Resolved]

NARRATIVE: CASE EVENT DATE: 20200910
